FAERS Safety Report 9989777 (Version 1)
Quarter: 2014Q1

REPORT INFORMATION
  Report Type: Report from Study
  Country: US (occurrence: US)
  Receive Date: 20140310
  Receipt Date: 20140310
  Transmission Date: 20141002
  Serious: Yes (Hospitalization, Other)
  Sender: FDA-Public Use
  Company Number: US-ABBVIE-13P-163-1130792-00

PATIENT
  Age: 78 Year
  Sex: Female

DRUGS (10)
  1. HUMIRA [Suspect]
     Indication: PSORIATIC ARTHROPATHY
     Dates: start: 2008
  2. CLARITHROMYCIN [Suspect]
     Indication: PHARYNGITIS STREPTOCOCCAL
  3. CHLOR KON [Concomitant]
     Indication: BLOOD POTASSIUM DECREASED
     Route: 048
  4. PROPRANOLOL [Concomitant]
     Indication: HYPERTENSION
     Route: 048
  5. AMLODIPINE [Concomitant]
     Indication: HYPERTENSION
     Dosage: 2 TABLETS DAILY
     Route: 048
  6. METHOTREXATE [Concomitant]
     Indication: PSORIATIC ARTHROPATHY
     Dosage: WEEKLY, EVERY WEDNESDAY
     Route: 048
  7. FOLIC ACID [Concomitant]
     Indication: PSORIATIC ARTHROPATHY
     Route: 048
  8. PRAMIPEXOLE [Concomitant]
     Indication: RESTLESS LEGS SYNDROME
     Route: 048
  9. OXYBUTYNIN [Concomitant]
     Indication: BLADDER DISORDER
     Route: 048
  10. FLORINEF [Concomitant]
     Indication: RENAL FAILURE
     Dosage: 1.5 TABLETS DAILY
     Route: 048

REACTIONS (10)
  - Skin cancer [Unknown]
  - Skin cancer [Unknown]
  - Hip arthroplasty [Unknown]
  - Knee arthroplasty [Unknown]
  - Sinus congestion [Unknown]
  - Feeling abnormal [Unknown]
  - Asthenia [Unknown]
  - Pharyngitis streptococcal [Unknown]
  - Pyrexia [Recovered/Resolved]
  - Headache [Unknown]
